FAERS Safety Report 8266942-4 (Version None)
Quarter: 2012Q2

REPORT INFORMATION
  Report Type: 
  Country: None (occurrence: None)
  Receive Date: 20120404
  Receipt Date: 20120404
  Transmission Date: 20120825
  Serious: Yes (Hospitalization)
  Sender: FDA-Public Use
  Company Number: None

PATIENT
  Age: 45 Year
  Weight: 79.2 kg

DRUGS (4)
  1. IRON [Concomitant]
  2. MAGNESIUM [Concomitant]
  3. COUMADIN [Suspect]
     Indication: PULMONARY EMBOLISM
     Dosage: 9MG T TH SAT PO  : 8MG S M W F PO  RECENT
     Route: 048
  4. PROVERA [Concomitant]

REACTIONS (4)
  - INTERNATIONAL NORMALISED RATIO INCREASED [None]
  - VENOGRAM ABNORMAL [None]
  - HAEMORRHAGIC ANAEMIA [None]
  - NUCLEAR MAGNETIC RESONANCE IMAGING ABNORMAL [None]
